FAERS Safety Report 8889452 (Version 1)
Quarter: 2012Q4

REPORT INFORMATION
  Report Type: Spontaneous
  Country: US (occurrence: None)
  Receive Date: 20121102
  Receipt Date: 20121102
  Transmission Date: 20130627
  Serious: Yes (Hospitalization, Other)
  Sender: FDA-Public Use
  Company Number: None

PATIENT
  Age: 56 Year
  Sex: Female

DRUGS (2)
  1. PROCRIT [Suspect]
     Indication: ANEMIA
     Dates: start: 20120209, end: 20120831
  2. PROCRIT [Suspect]
     Dates: start: 20120209, end: 20120831

REACTIONS (1)
  - Cerebrovascular accident [None]
